FAERS Safety Report 19937348 (Version 1)
Quarter: 2021Q4

REPORT INFORMATION
  Report Type: Spontaneous
  Country: US (occurrence: US)
  Receive Date: 20211010
  Receipt Date: 20211010
  Transmission Date: 20220303
  Serious: No
  Sender: FDA-Public Use
  Company Number: US-JNJFOC-20211007275

PATIENT
  Age: 69 Year
  Sex: Female
  Weight: 63.56 kg

DRUGS (1)
  1. BALVERSA [Suspect]
     Active Substance: ERDAFITINIB
     Indication: Haematological malignancy
     Dosage: 8 MG DAILY
     Route: 048

REACTIONS (8)
  - Dry mouth [Unknown]
  - Oral pain [Unknown]
  - Mouth ulceration [Unknown]
  - Dysphagia [Unknown]
  - Off label use [Unknown]
  - Feeding disorder [Unknown]
  - Dry throat [Unknown]
  - Product use in unapproved indication [Unknown]
